FAERS Safety Report 5911305-7 (Version None)
Quarter: 2008Q4

REPORT INFORMATION
  Report Type: 
  Country: None (occurrence: None)
  Receive Date: 20081007
  Receipt Date: 20080926
  Transmission Date: 20090506
  Serious: No
  Sender: FDA-Public Use
  Company Number: US-B.I. PHARMACEUTICALS,INC./RIDGEFIELD-2008-BP-14943BP

PATIENT
  Sex: Male

DRUGS (2)
  1. FLOMAX [Suspect]
     Dosage: .8MG
     Dates: start: 20080908
  2. FLOMAX [Suspect]
     Dosage: .4MG
     Dates: start: 20080401, end: 20080907

REACTIONS (4)
  - JOINT SWELLING [None]
  - MENISCUS LESION [None]
  - OEDEMA PERIPHERAL [None]
  - THERAPEUTIC RESPONSE DECREASED [None]
